FAERS Safety Report 17743553 (Version 1)
Quarter: 2020Q2

REPORT INFORMATION
  Report Type: Other
  Country: KE (occurrence: KE)
  Receive Date: 20200504
  Receipt Date: 20200504
  Transmission Date: 20200714
  Serious: Yes (Death, Life-Threatening, Hospitalization)
  Sender: FDA-Public Use
  Company Number: KE-NOSTRUM LABORATORIES, INC.-2083480

PATIENT
  Age: 53 Year
  Sex: Male

DRUGS (1)
  1. MORPHINE SULFATE. [Suspect]
     Active Substance: MORPHINE SULFATE
     Indication: PAIN
     Route: 042

REACTIONS (6)
  - Hypotension [Fatal]
  - Acute respiratory distress syndrome [Fatal]
  - Cardiac arrest [Fatal]
  - Acute kidney injury [Fatal]
  - Fournier^s gangrene [Fatal]
  - Septic shock [Fatal]
